FAERS Safety Report 12990937 (Version 1)
Quarter: 2016Q4

REPORT INFORMATION
  Report Type: Spontaneous
  Country: US (occurrence: US)
  Receive Date: 20161201
  Receipt Date: 20161201
  Transmission Date: 20170207
  Serious: No
  Sender: FDA-Public Use
  Company Number: US-OSMOTICA_PHARMACEUTICAL_US_LLC-POI0573201600027

PATIENT
  Age: 76 Year
  Sex: Female

DRUGS (4)
  1. ATORVASTATIN [Concomitant]
     Active Substance: ATORVASTATIN
     Indication: HYPERCHOLESTEROLAEMIA
  2. NIFEDIPINE EXTENDED-RELEASE TABLETS [Suspect]
     Active Substance: NIFEDIPINE
     Indication: HYPERTENSION
     Dates: start: 201601
  3. LISINOPRIL. [Concomitant]
     Active Substance: LISINOPRIL
     Indication: HYPERTENSION
  4. HYDRAZINE [Concomitant]
     Active Substance: HYDRAZINE SULFATE
     Indication: HYPERTENSION

REACTIONS (1)
  - Drug effect variable [Not Recovered/Not Resolved]

NARRATIVE: CASE EVENT DATE: 201604
